FAERS Safety Report 9585873 (Version 1)
Quarter: 2013Q4

REPORT INFORMATION
  Report Type: Spontaneous
  Country: US (occurrence: None)
  Receive Date: 20131002
  Receipt Date: 20131002
  Transmission Date: 20140711
  Serious: Yes (Hospitalization)
  Sender: FDA-Public Use
  Company Number: None

PATIENT
  Age: 86 Year
  Sex: Female
  Weight: 55 kg

DRUGS (9)
  1. AMIODARONE 200MG [Suspect]
     Indication: ATRIAL FIBRILLATION
     Route: 048
     Dates: start: 20130404, end: 20130826
  2. MEDS_DUONEBS [Concomitant]
  3. ASA [Concomitant]
  4. DILTIAZEM [Concomitant]
  5. WARFARIN [Concomitant]
  6. FUROSEMIDE [Concomitant]
  7. LANTANOPROST [Concomitant]
  8. NEBIVOLOL [Concomitant]
  9. PREDNISONE [Concomitant]

REACTIONS (4)
  - Dyspnoea exertional [None]
  - Acute respiratory failure [None]
  - Pulmonary toxicity [None]
  - Interstitial lung disease [None]
